FAERS Safety Report 23417989 (Version 1)
Quarter: 2024Q1

REPORT INFORMATION
  Report Type: Report from Study
  Country: IE (occurrence: None)
  Receive Date: 20240118
  Receipt Date: 20240118
  Transmission Date: 20240409
  Serious: Yes (Hospitalization)
  Sender: FDA-Public Use
  Company Number: 2024A011098

PATIENT
  Sex: Female

DRUGS (10)
  1. FASENRA [Suspect]
     Active Substance: BENRALIZUMAB
     Indication: Asthma
     Dosage: 30 MG AS PER PRESCRIPTION
     Route: 058
     Dates: start: 20231213
  2. SYMBICORT [Concomitant]
     Active Substance: BUDESONIDE\FORMOTEROL FUMARATE DIHYDRATE
     Dosage: 200.0MG UNKNOWN
  3. NU ASPIRIN [Concomitant]
     Dosage: 75.0MG UNKNOWN
  4. FUROSEMIDE [Concomitant]
     Active Substance: FUROSEMIDE
     Dosage: 40.0MG UNKNOWN
  5. PANTOPRAZOLE [Concomitant]
     Active Substance: PANTOPRAZOLE
     Dosage: 40.0MG UNKNOWN
  6. FEXFENADINE [Concomitant]
     Dosage: 180.0MG UNKNOWN
  7. FOLIC ACID [Concomitant]
     Active Substance: FOLIC ACID
     Dosage: 1.0MG UNKNOWN
  8. ELTOXIN [Concomitant]
     Dosage: 100.0MG UNKNOWN
  9. TERRAS FUMARATE [Concomitant]
     Dosage: 1.25MG UNKNOWN
  10. RAMIPRIL [Concomitant]
     Active Substance: RAMIPRIL
     Dosage: 1.25MG UNKNOWN

REACTIONS (1)
  - Haemorrhage [Unknown]
